FAERS Safety Report 4890592-0 (Version None)
Quarter: 2006Q1

REPORT INFORMATION
  Report Type: 
  Country: None (occurrence: None)
  Receive Date: 20060123
  Receipt Date: 20060112
  Transmission Date: 20060701
  Serious: No
  Sender: FDA-Public Use
  Company Number: US200601001122

PATIENT
  Age: 83 Year
  Sex: Female

DRUGS (3)
  1. FORTEO [Suspect]
     Indication: OSTEOPOROSIS
     Dates: start: 20051101
  2. FORTEO [Concomitant]
  3. CALCIUM CARBONATE (CALCIUM CARBONATE) TABLET [Concomitant]

REACTIONS (3)
  - CARDIAC PACEMAKER INSERTION [None]
  - DRUG DOSE OMISSION [None]
  - NO ADVERSE DRUG EFFECT [None]
